FAERS Safety Report 25665163 (Version 1)
Quarter: 2025Q3

REPORT INFORMATION
  Report Type: Spontaneous
  Country: US (occurrence: None)
  Receive Date: 20250809
  Receipt Date: 20250809
  Transmission Date: 20251021
  Serious: Yes (Other)
  Sender: FDA-CTU
  Company Number: None

PATIENT
  Age: 55 Year
  Sex: Female
  Weight: 49.5 kg

DRUGS (4)
  1. XANAX [Suspect]
     Active Substance: ALPRAZOLAM
     Indication: Dizziness
     Dosage: OTHER QUANTITY : 30 TABLET(S);?FREQUENCY : EVERY 6 HOURS;?
     Route: 048
  2. VALIUM [Suspect]
     Active Substance: DIAZEPAM
  3. GABAPENTIN [Concomitant]
     Active Substance: GABAPENTIN
  4. MIRTAZAPINE [Concomitant]
     Active Substance: MIRTAZAPINE

REACTIONS (10)
  - Withdrawal syndrome [None]
  - Insomnia [None]
  - Neuralgia [None]
  - Electric shock sensation [None]
  - Fear [None]
  - Akathisia [None]
  - Agoraphobia [None]
  - Depersonalisation/derealisation disorder [None]
  - Suicidal ideation [None]
  - Impaired quality of life [None]

NARRATIVE: CASE EVENT DATE: 20230610
